FAERS Safety Report 4690022-8 (Version None)
Quarter: 2005Q2

REPORT INFORMATION
  Report Type: 
  Country: None (occurrence: None)
  Receive Date: 20050614
  Receipt Date: 20050531
  Transmission Date: 20051028
  Serious: Yes (Death, Other)
  Sender: FDA-Public Use
  Company Number: 2005072442

PATIENT
  Age: 71 Year
  Sex: Female

DRUGS (6)
  1. CABERGOLINE [Suspect]
     Indication: PARKINSON'S DISEASE
     Dosage: SEE IMAGE
     Route: 048
     Dates: start: 20010825, end: 20010831
  2. CABERGOLINE [Suspect]
     Indication: PARKINSON'S DISEASE
     Dosage: SEE IMAGE
     Route: 048
     Dates: start: 20010831, end: 20011023
  3. CABERGOLINE [Suspect]
     Indication: PARKINSON'S DISEASE
     Dosage: SEE IMAGE
     Route: 048
     Dates: start: 20011023, end: 20050509
  4. EC DOPARL (BENSERAZIDE HYDROCHLORIDE, LEVODOA) [Suspect]
     Indication: PARKINSON'S DISEASE
     Dosage: 375 MG (125 MG, TID), ORAL
     Route: 048
     Dates: start: 20010807, end: 20050509
  5. ALFACALCIDOL (ALFACALCIDOL) [Suspect]
     Indication: OSTEOPOROSIS
     Dosage: 1 MG (1 MG, QD), ORAL
     Route: 048
     Dates: start: 20010831, end: 20050509
  6. FUROSEMIDE [Suspect]
     Indication: CARDIAC FAILURE
     Dosage: 20 MG (20 MG, QD), ORAL
     Route: 048
     Dates: start: 20041001, end: 20050505

REACTIONS (2)
  - CARDIAC FAILURE [None]
  - MYOCARDIAL INFARCTION [None]
